FAERS Safety Report 9690518 (Version 3)
Quarter: 2013Q4

REPORT INFORMATION
  Report Type: Spontaneous
  Country: US (occurrence: US)
  Receive Date: 20131115
  Receipt Date: 20131212
  Transmission Date: 20140711
  Serious: Yes (Other)
  Sender: FDA-Public Use
  Company Number: US-NOVOPROD-391123

PATIENT
  Age: 56 Year
  Sex: Female

DRUGS (5)
  1. VICTOZA [Suspect]
     Indication: TYPE 2 DIABETES MELLITUS
     Dosage: UNKNOWN
     Route: 058
     Dates: start: 201307, end: 2013
  2. LAMICTAL [Concomitant]
     Indication: BIPOLAR I DISORDER
     Dosage: 300 MG, QD
     Route: 048
     Dates: end: 201309
  3. LAMICTAL [Concomitant]
     Dosage: 400 MG, QD
     Route: 048
     Dates: start: 201309
  4. KLONOPIN [Concomitant]
     Indication: BIPOLAR I DISORDER
     Dosage: UNKNOWN
     Route: 048
  5. SEROQUEL [Concomitant]
     Indication: BIPOLAR I DISORDER
     Dosage: UNKNOWN
     Route: 048

REACTIONS (3)
  - Bipolar I disorder [Recovering/Resolving]
  - Condition aggravated [Recovering/Resolving]
  - Suicidal ideation [Recovering/Resolving]
